FAERS Safety Report 8158381-1 (Version None)
Quarter: 2012Q1

REPORT INFORMATION
  Report Type: 
  Country: None (occurrence: None)
  Receive Date: 20120223
  Receipt Date: 20120215
  Transmission Date: 20120608
  Serious: Yes (Other)
  Sender: FDA-Public Use
  Company Number: US-BAYER-2012-015595

PATIENT
  Age: 45 Year
  Sex: Female

DRUGS (3)
  1. MIRENA [Suspect]
     Indication: UTERINE LEIOMYOMA
  2. MIRENA [Suspect]
     Indication: GENITAL HAEMORRHAGE
     Dosage: UNK
     Dates: start: 20111201
  3. MIRENA [Suspect]
     Indication: MENORRHAGIA
     Dosage: UNK
     Dates: start: 20120203

REACTIONS (3)
  - DEVICE EXPULSION [None]
  - ANAEMIA [None]
  - POST PROCEDURAL HAEMORRHAGE [None]
